FAERS Safety Report 10317904 (Version 2)
Quarter: 2015Q1

REPORT INFORMATION
  Report Type: Other
  Country: US (occurrence: US)
  Receive Date: 20140719
  Receipt Date: 20150112
  Transmission Date: 20150720
  Serious: Yes (Hospitalization, Other)
  Sender: FDA-Public Use
  Company Number: US-GSKPPD-2014GSK012055

PATIENT
  Age: 76 Year
  Sex: Male

DRUGS (6)
  1. MICARDIS HTCZ [Concomitant]
  2. COREG [Concomitant]
     Active Substance: CARVEDILOL
  3. AVANDIA [Suspect]
     Active Substance: ROSIGLITAZONE MALEATE
     Indication: DIABETES MELLITUS
     Dosage: AVANDIA WAS NOT LISTED AMONG THE PATIENTS RECORDS REVIEWED.
     Route: 048
  4. ASPIRIN. [Concomitant]
     Active Substance: ASPIRIN
  5. LASIX [Concomitant]
     Active Substance: FUROSEMIDE
  6. AVAPRO [Concomitant]
     Active Substance: IRBESARTAN

REACTIONS (3)
  - Cardiac failure congestive [Unknown]
  - Coronary artery disease [Recovered/Resolved]
  - Hypertension [Recovered/Resolved]

NARRATIVE: CASE EVENT DATE: 20090720
